FAERS Safety Report 5404877-2 (Version None)
Quarter: 2007Q3

REPORT INFORMATION
  Report Type: 
  Country: None (occurrence: None)
  Receive Date: 20070713
  Receipt Date: 20070516
  Transmission Date: 20080115
  Serious: Yes (Life-Threatening, Hospitalization)
  Sender: FDA-Public Use
  Company Number: US-JNJFOC-20060503174

PATIENT
  Age: 46 Year
  Sex: Female
  Weight: 81 kg

DRUGS (4)
  1. ORTHO EVRA [Suspect]
     Indication: DYSFUNCTIONAL UTERINE BLEEDING
     Dosage: 1 DOSE(S), 3 IN 4 WEEK, TRANSDERMAL
     Route: 062
     Dates: start: 20050614, end: 20050720
  2. THEOPHYLLINE [Concomitant]
  3. PROVENTIL                (SALBUTAMOL) [Concomitant]
  4. FLOVENT [Concomitant]

REACTIONS (3)
  - DRUG ADMINISTRATION ERROR [None]
  - PHARMACEUTICAL PRODUCT COMPLAINT [None]
  - PULMONARY EMBOLISM [None]
